FAERS Safety Report 24227093 (Version 1)
Quarter: 2024Q3

REPORT INFORMATION
  Report Type: Spontaneous
  Country: CN (occurrence: CN)
  Receive Date: 20240820
  Receipt Date: 20240820
  Transmission Date: 20241017
  Serious: Yes (Hospitalization)
  Sender: CHEPLAPHARM
  Company Number: CN-CHEPLA-2024010642

PATIENT
  Age: 80 Year
  Sex: Female

DRUGS (3)
  1. OLANZAPINE [Suspect]
     Active Substance: OLANZAPINE
     Indication: Delirium
     Dosage: APPROVAL NUMBER: H20160497?DAILY DOSE: 2.5 MILLIGRAM
     Route: 048
     Dates: start: 20240618, end: 20240621
  2. CORDARONE [Suspect]
     Active Substance: AMIODARONE HYDROCHLORIDE
     Indication: Atrial fibrillation
     Dosage: APPROVAL NUMBER: H19993254; TID?DAILY DOSE: 0.6 GRAM
     Route: 048
     Dates: start: 20240616, end: 20240618
  3. CORDARONE [Suspect]
     Active Substance: AMIODARONE HYDROCHLORIDE
     Indication: Atrial fibrillation
     Dosage: APPROVAL NUMBER: J20130036; INTRAVENOUS DRIP?DAILY DOSE: 600 MILLIGRAM
     Route: 042
     Dates: start: 20240623, end: 20240623

REACTIONS (3)
  - Electrocardiogram QT interval abnormal [Recovering/Resolving]
  - Torsade de pointes [Recovering/Resolving]
  - Off label use [Unknown]

NARRATIVE: CASE EVENT DATE: 20240618
